FAERS Safety Report 5150381-9 (Version None)
Quarter: 2006Q4

REPORT INFORMATION
  Report Type: 
  Country: None (occurrence: None)
  Receive Date: 20061108
  Receipt Date: 20061027
  Transmission Date: 20070319
  Serious: Yes (Death, Hospitalization)
  Sender: FDA-Public Use
  Company Number: 2006132489

PATIENT
  Age: 62 Year
  Sex: Male

DRUGS (3)
  1. FRONTAL XR (ALPRAZOLAM) [Suspect]
     Indication: DEPRESSED MOOD
     Dosage: 2 MG (2 MG, 1 IN 1 D) ORAL
     Dates: start: 20050101, end: 20051101
  2. ATENOL (ATENOLOL) [Concomitant]
  3. ENALAPRIL MALEATE [Concomitant]

REACTIONS (6)
  - ABDOMINAL PAIN [None]
  - LIVER DISORDER [None]
  - PYREXIA [None]
  - TREMOR [None]
  - URINE COLOUR ABNORMAL [None]
  - VOMITING [None]
